FAERS Safety Report 13521902 (Version 1)
Quarter: 2017Q2

REPORT INFORMATION
  Report Type: Spontaneous
  Country: US (occurrence: US)
  Receive Date: 20170508
  Receipt Date: 20170508
  Transmission Date: 20170830
  Serious: Yes (Death, Hospitalization, Other)
  Sender: FDA-Public Use
  Company Number: US-B.I. PHARMACEUTICALS,INC./RIDGEFIELD-2017-BI-025656

PATIENT
  Sex: Female

DRUGS (1)
  1. PRADAXA [Suspect]
     Active Substance: DABIGATRAN ETEXILATE MESYLATE
     Indication: PRODUCT USED FOR UNKNOWN INDICATION
     Route: 065

REACTIONS (9)
  - Pneumonia aspiration [Fatal]
  - Colitis ischaemic [Unknown]
  - Anaemia [Recovered/Resolved]
  - Gastrointestinal haemorrhage [Fatal]
  - Respiratory failure [Fatal]
  - Dysphagia [Fatal]
  - Thrombocytopenia [Recovered/Resolved]
  - Septic shock [Fatal]
  - Deep vein thrombosis [Unknown]
